FAERS Safety Report 15269859 (Version 1)
Quarter: 2018Q3

REPORT INFORMATION
  Report Type: Spontaneous
  Country: US (occurrence: US)
  Receive Date: 20180726
  Receipt Date: 20180726
  Transmission Date: 20181010
  Serious: Yes (Other)
  Sender: FDA-Public Use
  Company Number: None

PATIENT
  Age: 52 Year
  Sex: Female
  Weight: 106.65 kg

DRUGS (1)
  1. VALSARTAN TABLETS, USP [Suspect]
     Active Substance: VALSARTAN
     Indication: HYPERTENSION
     Dosage: ?          QUANTITY:1 TABLET(S);?
     Route: 048
     Dates: start: 20180101, end: 20180726

REACTIONS (5)
  - Tinnitus [None]
  - Vision blurred [None]
  - Headache [None]
  - Fatigue [None]
  - Dry mouth [None]

NARRATIVE: CASE EVENT DATE: 20180130
